FAERS Safety Report 5375623-6 (Version None)
Quarter: 2007Q2

REPORT INFORMATION
  Report Type: 
  Country: None (occurrence: None)
  Receive Date: 20070629
  Receipt Date: 20070618
  Transmission Date: 20071010
  Serious: Yes (Other)
  Sender: FDA-Public Use
  Company Number: FR-PFIZER INC-2007051700

PATIENT
  Sex: Male

DRUGS (5)
  1. CHAMPIX [Suspect]
  2. PAROXETINE HCL [Concomitant]
  3. NEXIUM [Concomitant]
  4. ATACAND [Concomitant]
  5. ASPIRIN [Concomitant]

REACTIONS (8)
  - AGGRESSION [None]
  - ALCOHOL USE [None]
  - AMNESIA [None]
  - EPILEPSY [None]
  - FATIGUE [None]
  - ROAD TRAFFIC ACCIDENT [None]
  - SOMNOLENCE [None]
  - WEIGHT DECREASED [None]
